FAERS Safety Report 6126806-9 (Version None)
Quarter: 2009Q1

REPORT INFORMATION
  Report Type: 
  Country: None (occurrence: None)
  Receive Date: 20090320
  Receipt Date: 20090310
  Transmission Date: 20090719
  Serious: Yes (Hospitalization, Other)
  Sender: FDA-Public Use
  Company Number: JP-PFIZER INC-2009172434

PATIENT

DRUGS (17)
  1. CHAMPIX [Suspect]
     Indication: NICOTINE DEPENDENCE
     Dosage: 1 MG, 2X/DAY
     Route: 048
     Dates: start: 20081216, end: 20090310
  2. HALCION [Suspect]
     Route: 048
  3. CONTOMIN [Suspect]
  4. RISPERDAL [Suspect]
  5. SILECE [Suspect]
  6. EURODIN [Suspect]
  7. BICAMOL [Suspect]
     Dosage: UNK
  8. LOXONIN [Suspect]
     Dosage: UNK
  9. SELBEX [Suspect]
     Dosage: UNK
  10. IMIGRAN [Concomitant]
     Indication: MIGRAINE
     Route: 058
     Dates: start: 20080708, end: 20090202
  11. TOLTERODINE TARTRATE [Concomitant]
     Indication: HYPERTONIC BLADDER
     Route: 048
     Dates: start: 20080613, end: 20090202
  12. BLOPRESS [Concomitant]
     Indication: HYPERTENSION
     Route: 048
     Dates: start: 20080613, end: 20090202
  13. TAKEPRON [Concomitant]
     Indication: REFLUX OESOPHAGITIS
     Route: 048
     Dates: start: 20080930, end: 20090202
  14. PRIMPERAN [Concomitant]
     Indication: GASTROINTESTINAL DISORDER
     Route: 048
     Dates: start: 20080930, end: 20090202
  15. BESACOLIN [Concomitant]
     Route: 048
     Dates: start: 20081202, end: 20090202
  16. MAGNESIUM OXIDE [Concomitant]
     Indication: CONSTIPATION
     Route: 048
     Dates: start: 20081202, end: 20090202
  17. GASCON [Concomitant]
     Indication: CONSTIPATION
     Dates: start: 20081216, end: 20090202

REACTIONS (1)
  - ILEUS [None]
